FAERS Safety Report 18695553 (Version 2)
Quarter: 2021Q1

REPORT INFORMATION
  Report Type: Spontaneous
  Country: US (occurrence: US)
  Receive Date: 20210104
  Receipt Date: 20210104
  Transmission Date: 20210419
  Serious: No
  Sender: FDA-Public Use
  Company Number: US-PFIZER INC-2020516900

PATIENT
  Age: 74 Year
  Sex: Female
  Weight: 55.34 kg

DRUGS (4)
  1. PREMARIN [Suspect]
     Active Substance: ESTROGENS, CONJUGATED
     Indication: VAGINAL DISCHARGE
     Dosage: 2 G (FILL THE TUBE), 2X/WEEK
     Route: 067
  2. GABAPENTIN. [Suspect]
     Active Substance: GABAPENTIN
     Dosage: 1 DF, DAILY
     Route: 048
     Dates: start: 20201206
  3. GABAPENTIN. [Suspect]
     Active Substance: GABAPENTIN
     Indication: PAIN
     Dosage: 2 DF, DAILY
  4. PREMARIN [Suspect]
     Active Substance: ESTROGENS, CONJUGATED
     Dosage: 0.3 MG?1.5 MG, 1X/DAY
     Route: 048

REACTIONS (4)
  - Product use issue [Unknown]
  - Nervous system disorder [Unknown]
  - Off label use [Unknown]
  - Product use in unapproved indication [Unknown]
